FAERS Safety Report 4435171-4 (Version None)
Quarter: 2004Q3

REPORT INFORMATION
  Report Type: 
  Country: None (occurrence: None)
  Receive Date: 20040827
  Receipt Date: 20040818
  Transmission Date: 20050211
  Serious: Yes (Hospitalization)
  Sender: FDA-Public Use
  Company Number: FR-ROCHE-378148

PATIENT
  Age: 49 Year
  Sex: Male

DRUGS (7)
  1. CYMEVAN [Suspect]
     Route: 065
     Dates: start: 20040604, end: 20040626
  2. CYMEVAN [Suspect]
     Dosage: TREATMENT LASTED 3 WEEKS.
     Route: 065
     Dates: start: 20040315, end: 20040415
  3. BACTRIM [Suspect]
     Indication: DRUG USE FOR UNKNOWN INDICATION
     Route: 048
     Dates: start: 20031206, end: 20040630
  4. NEXIUM [Suspect]
     Indication: DRUG USE FOR UNKNOWN INDICATION
     Route: 048
     Dates: end: 20040705
  5. PROGRAF [Suspect]
     Indication: DRUG USE FOR UNKNOWN INDICATION
     Route: 065
  6. FENOFIBRATE [Suspect]
     Indication: DRUG USE FOR UNKNOWN INDICATION
     Route: 048
     Dates: end: 20040705
  7. NICARDIPINE HCL [Suspect]
     Indication: DRUG USE FOR UNKNOWN INDICATION
     Route: 048
     Dates: end: 20040705

REACTIONS (6)
  - ANAEMIA [None]
  - CARDIAC FAILURE [None]
  - LEUKOPENIA [None]
  - SEPTIC SHOCK [None]
  - SHOCK [None]
  - TOXIC EPIDERMAL NECROLYSIS [None]
